FAERS Safety Report 4408312-2 (Version None)
Quarter: 2004Q3

REPORT INFORMATION
  Report Type: 
  Country: None (occurrence: None)
  Receive Date: 20040726
  Receipt Date: 20040726
  Transmission Date: 20050211
  Serious: Yes (Other)
  Sender: FDA-Public Use
  Company Number: None

PATIENT
  Age: 62 Year
  Sex: Male
  Weight: 99.3 kg

DRUGS (1)
  1. CLINDAMYCIN [Suspect]

REACTIONS (2)
  - ANXIETY [None]
  - URTICARIA [None]
